FAERS Safety Report 9891401 (Version 2)
Quarter: 2014Q2

REPORT INFORMATION
  Report Type: Spontaneous
  Country: GB (occurrence: None)
  Receive Date: 20140207
  Receipt Date: 20140407
  Transmission Date: 20141212
  Serious: Yes (Hospitalization, Other)
  Sender: FDA-Public Use
  Company Number: 2161370

PATIENT
  Age: 47 Year
  Sex: Female
  Weight: 55 kg

DRUGS (4)
  1. EPIRUBICIN HYDROCHLORIDE [Suspect]
     Indication: INVASIVE DUCTAL BREAST CARCINOMA
     Route: 042
     Dates: start: 20131231
  2. FLUOROURACIL [Suspect]
     Indication: INVASIVE DUCTAL BREAST CARCINOMA
     Route: 042
     Dates: start: 20131231
  3. PEGFILGRASTIM [Suspect]
     Indication: PROPHYLAXIS
     Route: 058
     Dates: start: 20140101
  4. CYCLOPHOSPHAMIDE [Suspect]
     Indication: INVASIVE DUCTAL BREAST CARCINOMA
     Route: 042
     Dates: start: 20131231

REACTIONS (11)
  - Cerebral infarction [None]
  - Cerebrovascular accident [None]
  - Hemianopia homonymous [None]
  - Somnolence [None]
  - Lower respiratory tract infection [None]
  - Respiratory failure [None]
  - Herpes zoster [None]
  - Blindness [None]
  - Lower respiratory tract infection [None]
  - Neutrophil count decreased [None]
  - White blood cell count decreased [None]
